FAERS Safety Report 7078993-6 (Version None)
Quarter: 2010Q4

REPORT INFORMATION
  Report Type: 
  Country: None (occurrence: None)
  Receive Date: 20101102
  Receipt Date: 20101029
  Transmission Date: 20110411
  Serious: Yes (Hospitalization)
  Sender: FDA-Public Use
  Company Number: FR-ROCHE-733697

PATIENT
  Sex: Female

DRUGS (7)
  1. VALIUM [Suspect]
     Route: 048
     Dates: start: 20100811
  2. ABILIFY [Suspect]
     Route: 048
     Dates: start: 20100719, end: 20100914
  3. TIAPRIDAL [Suspect]
     Route: 065
     Dates: start: 20100804
  4. AVLOCARDYL [Concomitant]
  5. IMOVANE [Concomitant]
  6. INIPOMP [Concomitant]
  7. LEVOTHYROXINE SODIUM [Concomitant]

REACTIONS (6)
  - ALANINE AMINOTRANSFERASE INCREASED [None]
  - ANXIETY [None]
  - ASPARTATE AMINOTRANSFERASE INCREASED [None]
  - BLOOD CREATINE PHOSPHOKINASE INCREASED [None]
  - CELL DEATH [None]
  - HYPERHIDROSIS [None]
